FAERS Safety Report 4317992-1 (Version None)
Quarter: 2004Q1

REPORT INFORMATION
  Report Type: 
  Country: None (occurrence: None)
  Receive Date: 20040316
  Receipt Date: 20040305
  Transmission Date: 20041129
  Serious: Yes (Other)
  Sender: FDA-Public Use
  Company Number: PHBS2004FR03235

PATIENT
  Age: 36 Year
  Sex: Female

DRUGS (5)
  1. CYCLOSPORINE [Suspect]
     Indication: RENAL TRANSPLANT
     Route: 065
  2. CORTICOSTEROID NOS [Concomitant]
  3. AZATHIOPRINE [Concomitant]
  4. ANTI-CD25 ANTIBODY [Concomitant]
  5. ANTICOAGULANTS [Concomitant]

REACTIONS (2)
  - CYTOMEGALOVIRUS INFECTION [None]
  - DEEP VEIN THROMBOSIS [None]
